FAERS Safety Report 5246693-0 (Version None)
Quarter: 2007Q1

REPORT INFORMATION
  Report Type: 
  Country: None (occurrence: None)
  Receive Date: 20070222
  Receipt Date: 20070222
  Transmission Date: 20070707
  Serious: No
  Sender: FDA-Public Use
  Company Number: None

PATIENT
  Sex: Female

DRUGS (1)
  1. ZEVALIN [Suspect]
     Indication: LYMPHOMA
     Dosage: ONE TIME INJECTION
     Dates: start: 20060104

REACTIONS (3)
  - INJECTION SITE ERYTHEMA [None]
  - INJECTION SITE ULCER [None]
  - OPEN WOUND [None]
